FAERS Safety Report 7432269-3 (Version None)
Quarter: 2011Q2

REPORT INFORMATION
  Report Type: 
  Country: None (occurrence: None)
  Receive Date: 20110414
  Receipt Date: 20110404
  Transmission Date: 20111010
  Serious: Yes (Other)
  Sender: FDA-Public Use
  Company Number: ISPH-2011-0120

PATIENT
  Age: 43 Year
  Sex: Female

DRUGS (7)
  1. AZASITE [Suspect]
     Indication: BLEPHARITIS
     Dosage: 1 GTT, QD, OPHTHALMIC
     Route: 047
     Dates: start: 20110329, end: 20110401
  2. AZITHROMYCIN [Suspect]
     Indication: EYELID INFECTION
     Dosage: ORAL
     Route: 048
     Dates: start: 20110301
  3. IBUPROFEN (ADVIL) [Concomitant]
  4. RESTASIS [Suspect]
  5. LASTACAFT [Suspect]
  6. FISH OIL [Concomitant]
  7. ZYLET [Suspect]

REACTIONS (5)
  - ANAPHYLACTIC REACTION [None]
  - BLOOD PRESSURE INCREASED [None]
  - LYMPHADENOPATHY [None]
  - OCULAR HYPERAEMIA [None]
  - EYE IRRITATION [None]
